FAERS Safety Report 13201456 (Version 1)
Quarter: 2017Q1

REPORT INFORMATION
  Report Type: Spontaneous
  Country: US (occurrence: US)
  Receive Date: 20170209
  Receipt Date: 20170209
  Transmission Date: 20170428
  Serious: No
  Sender: FDA-Public Use
  Company Number: US-ENDO PHARMACEUTICALS INC-2016-005525

PATIENT
  Age: 67 Year
  Sex: Female
  Weight: 75.82 kg

DRUGS (1)
  1. METHYLPREDNISOLONE TABLETS [Suspect]
     Active Substance: METHYLPREDNISOLONE
     Indication: BRONCHITIS
     Dosage: DOSE PACK
     Route: 065
     Dates: start: 20160105, end: 20160111

REACTIONS (3)
  - Nausea [Recovered/Resolved]
  - Mental impairment [Recovered/Resolved]
  - Intentional product misuse [Recovered/Resolved]

NARRATIVE: CASE EVENT DATE: 201601
